FAERS Safety Report 4322930-1 (Version None)
Quarter: 2004Q1

REPORT INFORMATION
  Report Type: 
  Country: None (occurrence: None)
  Receive Date: 20040322
  Receipt Date: 20040129
  Transmission Date: 20041129
  Serious: Yes (Other)
  Sender: FDA-Public Use
  Company Number: PHEH2004US02021

PATIENT
  Age: 72 Year
  Sex: Female
  Weight: 59.9 kg

DRUGS (1)
  1. ZOMETA [Suspect]

REACTIONS (3)
  - IMPAIRED HEALING [None]
  - OSTEONECROSIS [None]
  - STOMATITIS [None]
